FAERS Safety Report 18668498 (Version 1)
Quarter: 2020Q4

REPORT INFORMATION
  Report Type: Spontaneous
  Country: US (occurrence: US)
  Receive Date: 20201223
  Receipt Date: 20201223
  Transmission Date: 20210114
  Serious: No
  Sender: FDA-Public Use
  Company Number: None

PATIENT
  Age: 64 Year
  Sex: Female

DRUGS (1)
  1. REVLIMID [Suspect]
     Active Substance: LENALIDOMIDE
     Indication: PLASMA CELL MYELOMA
     Route: 048
     Dates: start: 20140506

REACTIONS (6)
  - Lactic acidosis [None]
  - Pyrexia [None]
  - SARS-CoV-2 test positive [None]
  - Sepsis [None]
  - Multiple organ dysfunction syndrome [None]
  - Therapy interrupted [None]

NARRATIVE: CASE EVENT DATE: 20201111
